FAERS Safety Report 10099582 (Version 1)
Quarter: 2014Q2

REPORT INFORMATION
  Report Type: Spontaneous
  Country: IT (occurrence: IT)
  Receive Date: 20140423
  Receipt Date: 20140423
  Transmission Date: 20141212
  Serious: Yes (Hospitalization)
  Sender: FDA-Public Use
  Company Number: IT-BAYER-2014-056843

PATIENT
  Age: 61 Year
  Sex: Female

DRUGS (1)
  1. ULTRAVIST [Suspect]
     Indication: COMPUTERISED TOMOGRAM
     Dosage: 80 ML, ONCE
     Route: 042
     Dates: start: 20140401, end: 20140401

REACTIONS (2)
  - Acute pulmonary oedema [Unknown]
  - Back pain [Unknown]
